FAERS Safety Report 8947476 (Version 2)
Quarter: 2015Q1

REPORT INFORMATION
  Report Type: Report from Study
  Country: FR (occurrence: FR)
  Receive Date: 20121204
  Receipt Date: 20150122
  Transmission Date: 20150721
  Serious: Yes (Death)
  Sender: FDA-Public Use
  Company Number: FR-ROCHE-1162743

PATIENT
  Age: 57 Year
  Sex: Female

DRUGS (4)
  1. RITUXIMAB [Suspect]
     Active Substance: RITUXIMAB
     Dosage: DAY 15
     Route: 042
     Dates: start: 20080317, end: 20090415
  2. CORTANCYL [Concomitant]
     Active Substance: PREDNISONE
     Dosage: DAILY
     Route: 065
  3. RITUXIMAB [Suspect]
     Active Substance: RITUXIMAB
     Indication: RHEUMATOID ARTHRITIS
     Dosage: DAY 1
     Route: 042
     Dates: start: 20080305
  4. SULFASALAZINE. [Concomitant]
     Active Substance: SULFASALAZINE
     Dosage: DAILY
     Route: 065

REACTIONS (2)
  - Breast cancer recurrent [Fatal]
  - Bronchitis [Recovered/Resolved]

NARRATIVE: CASE EVENT DATE: 200901
